FAERS Safety Report 19308102 (Version 1)
Quarter: 2021Q2

REPORT INFORMATION
  Report Type: Spontaneous
  Country: GB (occurrence: GB)
  Receive Date: 20210526
  Receipt Date: 20210526
  Transmission Date: 20210717
  Serious: Yes (Other)
  Sender: FDA-Public Use
  Company Number: GB-MYLANLABS-2021M1030623

PATIENT
  Age: 59 Year
  Sex: Female
  Weight: 90 kg

DRUGS (18)
  1. METFORMIN [Suspect]
     Active Substance: METFORMIN HYDROCHLORIDE
     Indication: PRODUCT USED FOR UNKNOWN INDICATION
     Dosage: 500 MILLIGRAM
     Route: 065
     Dates: start: 20210520
  2. PREGABALIN. [Concomitant]
     Active Substance: PREGABALIN
     Dosage: 1 DOSAGE FORM, BID
     Dates: start: 20190702
  3. MIRABEGRON [Concomitant]
     Active Substance: MIRABEGRON
     Dosage: 1 DOSAGE FORM, QD
     Dates: start: 20190702
  4. RAMIPRIL. [Concomitant]
     Active Substance: RAMIPRIL
     Dosage: 1 DOSAGE FORM, QD
     Dates: start: 20190702
  5. ASPIRIN                            /00002701/ [Concomitant]
     Active Substance: ASPIRIN
     Dosage: 1 DOSAGE FORM, QD
     Dates: start: 20190702
  6. BRALTUS [Concomitant]
     Active Substance: TIOTROPIUM BROMIDE
     Dosage: 1 DOSAGE FORM, QD
     Route: 055
     Dates: start: 20190702
  7. COCODAMOL [Concomitant]
     Active Substance: ACETAMINOPHEN\CODEINE PHOSPHATE
     Dosage: 2 DOSAGE FORM, QID
     Dates: start: 20190702
  8. SALBUTAMOL [Concomitant]
     Active Substance: ALBUTEROL
     Dosage: 2 DOSAGE FORM
     Route: 055
     Dates: start: 20190702
  9. ALOGLIPTIN. [Concomitant]
     Active Substance: ALOGLIPTIN
     Dosage: 1 DOSAGE FORM, QD
     Dates: start: 20201222
  10. ATORVASTATIN [Concomitant]
     Active Substance: ATORVASTATIN
     Dosage: 1 DOSAGE FORM, QD
     Dates: start: 20190702
  11. BISOPROLOL [Concomitant]
     Active Substance: BISOPROLOL
     Dosage: 1 DOSAGE FORM, QD
     Dates: start: 20190702
  12. NITROFURANTOIN. [Concomitant]
     Active Substance: NITROFURANTOIN
     Dosage: 1 DOSAGE FORM, QD (AT NIGHT)
     Dates: start: 20191008, end: 20210520
  13. ACIDEX                             /01521901/ [Concomitant]
     Active Substance: CALCIUM CARBONATE\SODIUM ALGINATE\SODIUM BICARBONATE
     Dosage: 20ML AFTER EACH MEAL AND 20 ML TO BE TAKEN EACH...
     Dates: start: 20190702
  14. LANSOPRAZOLE. [Concomitant]
     Active Substance: LANSOPRAZOLE
     Dosage: 1 DOSAGE FORM, BID
     Dates: start: 20190702
  15. AMLODIPINE [Concomitant]
     Active Substance: AMLODIPINE BESYLATE
     Dosage: 1 DOSAGE FORM, QD
     Dates: start: 20200130
  16. SERTRALINE [Concomitant]
     Active Substance: SERTRALINE HYDROCHLORIDE
     Dosage: 1 DOSAGE FORM, QD (EVERY MORNING)
     Dates: start: 20190702
  17. TRIMETHOPRIM. [Concomitant]
     Active Substance: TRIMETHOPRIM
     Dosage: 1 DOSAGE FORM, QD (AT NIGHT)
     Dates: start: 20191008, end: 20210520
  18. FUROSEMIDE. [Concomitant]
     Active Substance: FUROSEMIDE
     Dosage: 1 DOSAGE FORM, QD (EACH MORNING)
     Dates: start: 20190702

REACTIONS (1)
  - Palpitations [Recovered/Resolved]

NARRATIVE: CASE EVENT DATE: 20210520
